FAERS Safety Report 11936852 (Version 1)
Quarter: 2016Q1

REPORT INFORMATION
  Report Type: Spontaneous
  Country: FR (occurrence: FR)
  Receive Date: 20160121
  Receipt Date: 20160121
  Transmission Date: 20160526
  Serious: Yes (Other)
  Sender: FDA-Public Use
  Company Number: PHHY2016FR004630

PATIENT
  Age: 70 Year
  Sex: Male

DRUGS (1)
  1. SANDOSTATINE LP [Suspect]
     Active Substance: OCTREOTIDE ACETATE
     Indication: ACROMEGALY
     Dosage: 20 MG, QMO
     Route: 030
     Dates: start: 2004

REACTIONS (3)
  - Malaise [Unknown]
  - Cardiac disorder [Unknown]
  - Loss of consciousness [Unknown]
